FAERS Safety Report 7556668-4 (Version None)
Quarter: 2011Q2

REPORT INFORMATION
  Report Type: 
  Country: None (occurrence: None)
  Receive Date: 20110609
  Receipt Date: 20110603
  Transmission Date: 20111010
  Serious: Yes (Death)
  Sender: FDA-Public Use
  Company Number: DSA_46691_2011

PATIENT
  Sex: Female

DRUGS (5)
  1. LORAZEPAM [Concomitant]
  2. NEURONTIN [Concomitant]
  3. AMANTADINE HCL [Concomitant]
  4. RISPERDAL [Concomitant]
  5. XENAZINE [Suspect]
     Indication: HUNTINGTON'S DISEASE
     Dosage: (25 MG BID ORAL)
     Route: 048
     Dates: start: 20101019, end: 20110511

REACTIONS (19)
  - APHASIA [None]
  - DYSPHAGIA [None]
  - DYSGRAPHIA [None]
  - ASTHENIA [None]
  - DEMENTIA [None]
  - BALANCE DISORDER [None]
  - WEIGHT INCREASED [None]
  - MEMORY IMPAIRMENT [None]
  - CONDITION AGGRAVATED [None]
  - DISTURBANCE IN ATTENTION [None]
  - DIZZINESS [None]
  - COGNITIVE DISORDER [None]
  - SPEECH DISORDER [None]
  - COORDINATION ABNORMAL [None]
  - FALL [None]
  - INSOMNIA [None]
  - HUNTINGTON'S DISEASE [None]
  - WEIGHT DECREASED [None]
  - DEPRESSION [None]
